FAERS Safety Report 4354185-6 (Version None)
Quarter: 2004Q2

REPORT INFORMATION
  Report Type: 
  Country: None (occurrence: None)
  Receive Date: 20040506
  Receipt Date: 20040223
  Transmission Date: 20050107
  Serious: Yes (Hospitalization, Other)
  Sender: FDA-Public Use
  Company Number: JP-MERCK-0402USA01846

PATIENT
  Age: 73 Year
  Sex: Female
  Weight: 50 kg

DRUGS (5)
  1. FOSAMAX [Suspect]
     Indication: OSTEOPOROSIS
     Route: 048
     Dates: end: 20040223
  2. CARVEDILOL [Concomitant]
     Indication: HYPERTENSION
     Route: 065
  3. IRSOGLADINE MALEATE [Concomitant]
     Indication: GASTRIC ULCER
     Route: 065
  4. IRSOGLADINE MALEATE [Concomitant]
     Indication: DUODENAL ULCER
     Route: 065
  5. VERAPAMIL HYDROCHLORIDE [Concomitant]
     Indication: ATRIAL FIBRILLATION
     Route: 065

REACTIONS (8)
  - ADVERSE EVENT [None]
  - CEREBRAL INFARCTION [None]
  - DUODENAL ULCER [None]
  - FAECAL OCCULT BLOOD POSITIVE [None]
  - GASTRIC ULCER [None]
  - GASTRITIS [None]
  - GASTROINTESTINAL HAEMORRHAGE [None]
  - PANCYTOPENIA [None]
